FAERS Safety Report 5345375-4 (Version None)
Quarter: 2007Q2

REPORT INFORMATION
  Report Type: 
  Country: None (occurrence: None)
  Receive Date: 20070601
  Receipt Date: 20070521
  Transmission Date: 20071010
  Serious: No
  Sender: FDA-Public Use
  Company Number: SPV1-2007-01533

PATIENT
  Age: 40 Year
  Sex: Female

DRUGS (4)
  1. CARBATROL [Suspect]
     Indication: EPILEPSY
     Dosage: 300 MG, 2X/DAY: BID
     Dates: start: 20000101
  2. VITAMIN D /00107901/ (ERGOCALCIFEROL) [Concomitant]
  3. CALCIUM (CALCIUM) [Concomitant]
  4. MULTIVITAMIN /008317014/ (VITAMINS NOS) [Concomitant]

REACTIONS (3)
  - ORAL INTAKE REDUCED [None]
  - TOOTH FRACTURE [None]
  - TOOTH LOSS [None]
